FAERS Safety Report 15646891 (Version 8)
Quarter: 2020Q3

REPORT INFORMATION
  Report Type: Report from Study
  Country: CO (occurrence: CO)
  Receive Date: 20181122
  Receipt Date: 20200724
  Transmission Date: 20201102
  Serious: Yes (Hospitalization, Other)
  Sender: FDA-Public Use
  Company Number: CO-ACTELION-A-CH2018-165229

PATIENT
  Age: 37 Year
  Sex: Female
  Weight: 54 kg

DRUGS (3)
  1. MACITENTAN [Suspect]
     Active Substance: MACITENTAN
     Indication: PULMONARY ARTERIAL HYPERTENSION
     Dosage: 10 MG, QD
     Route: 048
     Dates: start: 20171219
  2. ILOPROST. [Suspect]
     Active Substance: ILOPROST
     Indication: PRODUCT USED FOR UNKNOWN INDICATION
     Dosage: UNK
     Route: 065
     Dates: start: 2019, end: 2019
  3. RIOCIGUAT. [Concomitant]
     Active Substance: RIOCIGUAT
     Indication: PULMONARY ARTERIAL HYPERTENSION
     Dosage: 2.5 MG, TID
     Route: 048

REACTIONS (31)
  - Dyspnoea [Not Recovered/Not Resolved]
  - Immune system disorder [Not Recovered/Not Resolved]
  - Epistaxis [Not Recovered/Not Resolved]
  - Chest pain [Not Recovered/Not Resolved]
  - Transplant evaluation [Not Recovered/Not Resolved]
  - Syncope [Not Recovered/Not Resolved]
  - Face oedema [Recovered/Resolved]
  - Pulmonary arterial hypertension [Unknown]
  - Cardiomegaly [Not Recovered/Not Resolved]
  - Pulmonary pain [Recovering/Resolving]
  - Inflammation [Not Recovered/Not Resolved]
  - Peripheral swelling [Not Recovered/Not Resolved]
  - Diarrhoea [Not Recovered/Not Resolved]
  - Catheterisation cardiac [Recovering/Resolving]
  - Tachycardia [Not Recovered/Not Resolved]
  - Swelling face [Not Recovered/Not Resolved]
  - Cellulitis [Not Recovered/Not Resolved]
  - Tremor [Not Recovered/Not Resolved]
  - Oedema peripheral [Recovered/Resolved]
  - Fatigue [Not Recovered/Not Resolved]
  - Condition aggravated [Unknown]
  - General physical health deterioration [Not Recovered/Not Resolved]
  - Discomfort [Not Recovered/Not Resolved]
  - Abdominal pain upper [Unknown]
  - Pain [Not Recovered/Not Resolved]
  - Feeling hot [Not Recovered/Not Resolved]
  - Loss of consciousness [Not Recovered/Not Resolved]
  - Chest X-ray abnormal [Not Recovered/Not Resolved]
  - Joint swelling [Not Recovered/Not Resolved]
  - Erythema [Not Recovered/Not Resolved]
  - Fall [Not Recovered/Not Resolved]

NARRATIVE: CASE EVENT DATE: 20171222
